FAERS Safety Report 10787320 (Version 1)
Quarter: 2015Q1

REPORT INFORMATION
  Report Type: Spontaneous
  Country: AU (occurrence: AU)
  Receive Date: 20150211
  Receipt Date: 20150211
  Transmission Date: 20150721
  Serious: Yes (Other)
  Sender: FDA-Public Use
  Company Number: AU-MYLANLABS-2015M1003889

PATIENT

DRUGS (2)
  1. TEMAZEPAM. [Suspect]
     Active Substance: TEMAZEPAM
     Dosage: 25 X 10MG
     Route: 065
  2. DESVENLAFAXINE. [Suspect]
     Active Substance: DESVENLAFAXINE
     Indication: OVERDOSE
     Dosage: 47 X 50MG
     Route: 065

REACTIONS (2)
  - Bundle branch block [Recovered/Resolved]
  - Overdose [Recovered/Resolved]
